FAERS Safety Report 21886271 (Version 1)
Quarter: 2023Q1

REPORT INFORMATION
  Report Type: Spontaneous
  Country: CN (occurrence: None)
  Receive Date: 20230119
  Receipt Date: 20230119
  Transmission Date: 20230418
  Serious: Yes (Other)
  Sender: FDA-Public Use
  Company Number: 2023A010199

PATIENT
  Age: 50 Year
  Sex: Female
  Weight: 58 kg

DRUGS (3)
  1. IMFINZI [Suspect]
     Active Substance: DURVALUMAB
     Indication: Small cell lung cancer extensive stage
     Dosage: 1000 MG/PERIOD1000.0MG UNKNOWN
     Route: 065
     Dates: start: 20211011
  2. ETOPOSIDE [Concomitant]
     Active Substance: ETOPOSIDE
     Indication: Small cell lung cancer extensive stage
  3. CARBOPLATIN OR CISPLATIN [Concomitant]
     Indication: Small cell lung cancer extensive stage

REACTIONS (2)
  - Metastases to liver [Unknown]
  - Drug level increased [Unknown]
